FAERS Safety Report 21986418 (Version 2)
Quarter: 2023Q1

REPORT INFORMATION
  Report Type: Spontaneous
  Country: US (occurrence: US)
  Receive Date: 20230213
  Receipt Date: 20230313
  Transmission Date: 20230418
  Serious: No
  Sender: FDA-Public Use
  Company Number: US-BRISTOL-MYERS SQUIBB COMPANY-2023-021032

PATIENT
  Age: 92 Year
  Sex: Male

DRUGS (1)
  1. LENALIDOMIDE [Suspect]
     Active Substance: LENALIDOMIDE
     Indication: Cellulitis
     Dosage: TAKE 1 CAPSULE BY MOUTH EVERY OTHER DAY FOR 3 WEEKS ON THEN 1 WEEK OFF
     Route: 048
     Dates: start: 20221129

REACTIONS (2)
  - Off label use [Unknown]
  - Product dose omission issue [Unknown]
